FAERS Safety Report 7248887-1 (Version None)
Quarter: 2011Q1

REPORT INFORMATION
  Report Type: 
  Country: None (occurrence: None)
  Receive Date: 20110128
  Receipt Date: 20100908
  Transmission Date: 20110831
  Serious: Yes (Hospitalization)
  Sender: FDA-Public Use
  Company Number: US-BAYER-200940994NA

PATIENT
  Sex: Female
  Weight: 102.4 kg

DRUGS (9)
  1. ALBUTEROL [Concomitant]
     Indication: ASTHMA
     Dosage: UNK
  2. BACTRIM [Concomitant]
     Indication: URINARY TRACT INFECTION
     Dosage: UNK
     Dates: start: 20090103
  3. ADVAIR [Concomitant]
     Indication: ASTHMA
     Dosage: UNK
     Dates: start: 20080101, end: 20090101
  4. CLARITIN [Concomitant]
     Indication: PRODUCT USED FOR UNKNOWN INDICATION
     Dosage: UNK
     Dates: start: 20080101
  5. IBUPROFEN [Concomitant]
     Indication: PAIN
     Dosage: UNK
     Dates: start: 20020101
  6. PEPCID [Concomitant]
     Indication: NAUSEA
     Dosage: UNK
     Dates: start: 20090103
  7. YASMIN [Suspect]
     Indication: PRODUCT USED FOR UNKNOWN INDICATION
  8. YAZ [Suspect]
     Indication: CONTRACEPTION
     Dosage: UNK
     Dates: start: 20071120, end: 20080101
  9. ZOFRAN [Concomitant]
     Indication: NAUSEA
     Dosage: UNK
     Dates: start: 20090103

REACTIONS (6)
  - CHOLELITHIASIS [None]
  - VOMITING [None]
  - CHOLECYSTITIS ACUTE [None]
  - CHOLECYSTITIS CHRONIC [None]
  - NAUSEA [None]
  - ABDOMINAL PAIN UPPER [None]
